FAERS Safety Report 21271016 (Version 4)
Quarter: 2022Q4

REPORT INFORMATION
  Report Type: Spontaneous
  Country: CH (occurrence: CH)
  Receive Date: 20220830
  Receipt Date: 20221118
  Transmission Date: 20230113
  Serious: Yes (Life-Threatening, Hospitalization, Other)
  Sender: FDA-Public Use
  Company Number: None

PATIENT
  Age: 49 Year
  Sex: Female

DRUGS (46)
  1. XANAX [Suspect]
     Active Substance: ALPRAZOLAM
     Dosage: 4 MG/DAY + 2X4MG IN RESERVE (TREATMENT AT HOME)
     Route: 065
  2. LORAZEPAM [Suspect]
     Active Substance: LORAZEPAM
     Dosage: 3X1 MG IN RESERVE, AS NEEDED
     Route: 065
  3. FENTANYL [Suspect]
     Active Substance: FENTANYL
     Dosage: 100 UG, 1X/HOUR
     Route: 062
     Dates: start: 20220601, end: 20220601
  4. FENTANYL [Suspect]
     Active Substance: FENTANYL
     Dosage: 50 UG, 1X/HOUR
     Route: 062
     Dates: start: 20220610, end: 20220712
  5. FENTANYL [Suspect]
     Active Substance: FENTANYL
     Dosage: 100 UG, 1X/HOUR
     Route: 062
     Dates: start: 20220713, end: 20220805
  6. FENTANYL [Suspect]
     Active Substance: FENTANYL
     Dosage: UNK
     Route: 062
     Dates: start: 20220806
  7. FENTANYL [Suspect]
     Active Substance: FENTANYL
     Dosage: UNK
     Route: 042
     Dates: start: 20220804, end: 20220805
  8. RIVOTRIL [Suspect]
     Active Substance: CLONAZEPAM
     Dosage: 0.5 MG, 3X/DAY
     Route: 065
     Dates: start: 20220630
  9. CEFTRIAXONE [Concomitant]
     Active Substance: CEFTRIAXONE
     Indication: Infection
     Dosage: UNK
     Dates: start: 20220420, end: 20220607
  10. AMOXICILLIN\CLAVULANIC ACID [Concomitant]
     Active Substance: AMOXICILLIN\CLAVULANIC ACID
     Indication: Infection
     Dosage: UNK
     Dates: start: 20220530, end: 20220607
  11. DAPTOMYCIN [Concomitant]
     Active Substance: DAPTOMYCIN
     Indication: Infection
     Dosage: UNK
     Route: 042
     Dates: start: 20220613, end: 20220621
  12. DAPTOMYCIN [Concomitant]
     Active Substance: DAPTOMYCIN
     Dosage: 04AUG2022 POST INTERVENTION 05AUG2022 FOLLOWING ADVERSE EVENT
     Route: 042
     Dates: start: 20220804, end: 20220805
  13. DAPTOMYCIN [Concomitant]
     Active Substance: DAPTOMYCIN
     Dosage: UNK
     Route: 042
     Dates: start: 20220806
  14. METRONIDAZOLE [Concomitant]
     Active Substance: METRONIDAZOLE
     Indication: Infection
     Dosage: UNK
     Route: 048
     Dates: start: 20220617, end: 20220706
  15. METRONIDAZOLE [Concomitant]
     Active Substance: METRONIDAZOLE
     Dosage: UNK
     Route: 048
     Dates: start: 20220806
  16. METRONIDAZOLE [Concomitant]
     Active Substance: METRONIDAZOLE
     Dosage: UNK
     Route: 048
     Dates: start: 20220806
  17. CEFEPIME [Concomitant]
     Active Substance: CEFEPIME HYDROCHLORIDE
     Indication: Infection
     Dosage: UNK
     Route: 065
     Dates: start: 20220730, end: 20220802
  18. VANCOMYCIN [Concomitant]
     Active Substance: VANCOMYCIN
     Indication: Infection
     Dosage: UNK
     Route: 065
     Dates: start: 20220730, end: 20220802
  19. ENOXAPARIN SODIUM [Concomitant]
     Active Substance: ENOXAPARIN SODIUM
     Dosage: HOME TREATMENT
  20. MORPHINE [Concomitant]
     Active Substance: MORPHINE
     Dosage: AS NEEDED
     Route: 048
  21. TIZANIDINE [Concomitant]
     Active Substance: TIZANIDINE
     Dosage: UNK
     Route: 065
     Dates: start: 20220615
  22. DAFALGAN [Concomitant]
     Active Substance: ACETAMINOPHEN
     Dosage: HOME TREATMENT
  23. PREGABALIN [Concomitant]
     Active Substance: PREGABALIN
     Dosage: HOME TREATMENT
     Route: 065
  24. CELEBREX [Concomitant]
     Active Substance: CELECOXIB
     Dosage: UNK
     Route: 065
     Dates: start: 20220602
  25. MELATONIN [Concomitant]
     Active Substance: MELATONIN
     Dosage: UNK
     Route: 065
     Dates: start: 20220615
  26. TRAZODONE HYDROCHLORIDE [Concomitant]
     Active Substance: TRAZODONE HYDROCHLORIDE
     Dosage: HOME TREATMENT
  27. NEXIUM [Concomitant]
     Active Substance: ESOMEPRAZOLE MAGNESIUM
     Dosage: HOME TREATMENT
  28. PROGESTERONE [Concomitant]
     Active Substance: PROGESTERONE
     Dosage: UNK
     Route: 065
     Dates: start: 20220707
  29. ZOMIG [Concomitant]
     Active Substance: ZOLMITRIPTAN
     Dosage: 5 MG
     Route: 065
     Dates: start: 20220604
  30. IMOVANE [Concomitant]
     Active Substance: ZOPICLONE
     Dosage: HOME TREATMENT
     Route: 065
  31. VENTOLIN [Concomitant]
     Active Substance: ALBUTEROL SULFATE
     Dosage: AS NEEDED
     Route: 065
  32. FOLIC ACID [Concomitant]
     Active Substance: FOLIC ACID
     Dosage: UNK
     Route: 065
  33. CHOLECALCIFEROL [Concomitant]
     Active Substance: CHOLECALCIFEROL
     Dosage: UNK
     Route: 065
  34. CALCIUM\CHOLECALCIFEROL [Concomitant]
     Active Substance: CALCIUM\CHOLECALCIFEROL
     Dosage: UNK
     Route: 065
  35. CYANOCOBALAMIN\FOLIC ACID [Concomitant]
     Active Substance: CYANOCOBALAMIN\FOLIC ACID
     Dosage: UNK
  36. NICOTINELL [Concomitant]
     Active Substance: NICOTINE
     Dosage: HOME TREATMENT
     Route: 062
  37. ESTRADIOL [Concomitant]
     Active Substance: ESTRADIOL
     Dosage: UNK
     Route: 062
     Dates: start: 20220707
  38. FOSFOMYCIN SODIUM [Concomitant]
     Active Substance: FOSFOMYCIN SODIUM
     Dosage: 04AUG2022 POST INTERVENTION 05AUG2022 FOLLOWING THE ADVERSE EVENT
     Route: 042
     Dates: start: 20220804, end: 20220805
  39. FOSFOMYCIN SODIUM [Concomitant]
     Active Substance: FOSFOMYCIN SODIUM
     Dosage: UNK
     Route: 042
     Dates: start: 20220806
  40. SODIUM PICOSULFATE [Concomitant]
     Active Substance: SODIUM PICOSULFATE
     Dosage: HOME TREATMENT
     Route: 065
  41. DROPERIDOL [Concomitant]
     Active Substance: DROPERIDOL
     Dosage: AS NEEDED
     Route: 065
  42. ONDANSETRON [Concomitant]
     Active Substance: ONDANSETRON
     Dosage: AS NEEDED
     Route: 065
  43. TAZOBAC [TAZOBACTAM] [Concomitant]
     Indication: Infection
     Dosage: UNK
     Route: 065
     Dates: start: 20220613, end: 20220626
  44. METRONIDAZOLE [Concomitant]
     Active Substance: METRONIDAZOLE
     Dosage: UNK
     Route: 042
     Dates: start: 20220804, end: 20220805
  45. CYANOCOBALAMIN [Concomitant]
     Active Substance: CYANOCOBALAMIN
     Dosage: UNK
     Route: 065
  46. FOLIC ACID [Concomitant]
     Active Substance: FOLIC ACID
     Dosage: UNK
     Route: 065

REACTIONS (5)
  - Overdose [Unknown]
  - Respiratory arrest [Recovered/Resolved]
  - Cardio-respiratory arrest [Recovered/Resolved]
  - Anaphylactic reaction [Unknown]
  - Aspiration [Unknown]

NARRATIVE: CASE EVENT DATE: 20220805
